FAERS Safety Report 10255968 (Version 1)
Quarter: 2014Q2

REPORT INFORMATION
  Report Type: Spontaneous
  Country: GB (occurrence: GB)
  Receive Date: 20140624
  Receipt Date: 20140624
  Transmission Date: 20141212
  Serious: Yes (Other)
  Sender: FDA-Public Use
  Company Number: GB-GLAXOSMITHKLINE-B0988354A

PATIENT
  Age: 82 Year
  Sex: Female
  Weight: 61 kg

DRUGS (7)
  1. RELVAR ELLIPTA [Suspect]
     Indication: CHRONIC OBSTRUCTIVE PULMONARY DISEASE
     Dosage: 1IUAX PER DAY
     Route: 055
     Dates: start: 20140326, end: 20140407
  2. TIOTROPIUM [Concomitant]
     Indication: CHRONIC OBSTRUCTIVE PULMONARY DISEASE
     Route: 055
  3. LEVOTHYROXINE [Concomitant]
     Indication: HYPOTHYROIDISM
     Dosage: 100MCG PER DAY
     Route: 048
  4. ASPIRIN [Concomitant]
     Indication: TRANSIENT ISCHAEMIC ATTACK
     Dosage: 75MG PER DAY
     Route: 048
  5. OMEPRAZOLE [Concomitant]
     Dosage: 20MG PER DAY
     Route: 048
  6. CANDESARTAN [Concomitant]
     Indication: HYPERTENSION
     Dosage: 4MG PER DAY
     Route: 048
  7. CARBOCISTEINE [Concomitant]
     Indication: CHRONIC OBSTRUCTIVE PULMONARY DISEASE
     Dosage: 2250MG PER DAY
     Route: 048

REACTIONS (1)
  - Disorientation [Recovered/Resolved]
